FAERS Safety Report 13825245 (Version 1)
Quarter: 2017Q3

REPORT INFORMATION
  Report Type: Spontaneous
  Country: KR (occurrence: KR)
  Receive Date: 20170802
  Receipt Date: 20170802
  Transmission Date: 20171127
  Serious: Yes (Hospitalization, Other)
  Sender: FDA-Public Use
  Company Number: KR-009507513-1708KOR000055

PATIENT
  Age: 47 Year
  Sex: Female
  Weight: 61 kg

DRUGS (20)
  1. XELODA [Concomitant]
     Active Substance: CAPECITABINE
     Indication: CHEMOTHERAPY
     Dosage: 500 MG, 2 TABLETS, BID, CYCLE 7
     Route: 048
     Dates: start: 20160912, end: 20160925
  2. EMEND (FOSAPREPITANT DIMEGLUMINE) [Suspect]
     Active Substance: FOSAPREPITANT DIMEGLUMINE
     Dosage: 150 MG, ONCE
     Route: 042
     Dates: start: 20161107, end: 20161107
  3. ELOXATIN [Concomitant]
     Active Substance: OXALIPLATIN
     Dosage: 160 MG, ONCE, CYCLE 9 (STRENGTH: 100MG/20ML)
     Route: 042
     Dates: start: 20161107, end: 20161107
  4. EMEND (FOSAPREPITANT DIMEGLUMINE) [Suspect]
     Active Substance: FOSAPREPITANT DIMEGLUMINE
     Dosage: 150 MG, ONCE
     Route: 042
     Dates: start: 20161004, end: 20161004
  5. XELODA [Concomitant]
     Active Substance: CAPECITABINE
     Dosage: 500 MG, 2 TABLETS, BID, CYCLE 8
     Route: 048
     Dates: start: 20161004, end: 20161017
  6. DEXAMETHASONE. [Concomitant]
     Active Substance: DEXAMETHASONE
     Indication: PROPHYLAXIS OF NAUSEA AND VOMITING
     Dosage: 4 MG, BID
     Route: 048
     Dates: start: 20160913, end: 20160915
  7. DEXAMETHASONE. [Concomitant]
     Active Substance: DEXAMETHASONE
     Dosage: 4 MG, BID
     Route: 048
     Dates: start: 20161005, end: 20161007
  8. DEXAMETHASONE SODIUM PHOSPHATE. [Concomitant]
     Active Substance: DEXAMETHASONE SODIUM PHOSPHATE
     Indication: PROPHYLAXIS OF NAUSEA AND VOMITING
     Dosage: 12 MG, ONCE
     Route: 042
     Dates: start: 20160912, end: 20160912
  9. ALOXI [Concomitant]
     Active Substance: PALONOSETRON HYDROCHLORIDE
     Dosage: 0.25 MG, ONCE
     Route: 042
     Dates: start: 20161004, end: 20161004
  10. ELOXATIN [Concomitant]
     Active Substance: OXALIPLATIN
     Indication: CHEMOTHERAPY
     Dosage: 150 MG, ONCE, CYCLE 7 (STRENGTH: 100MG/20ML)
     Route: 042
     Dates: start: 20160912, end: 20160912
  11. DEXAMETHASONE. [Concomitant]
     Active Substance: DEXAMETHASONE
     Dosage: 8 MG, QD
     Route: 048
     Dates: start: 20161110, end: 20161110
  12. EMEND (FOSAPREPITANT DIMEGLUMINE) [Suspect]
     Active Substance: FOSAPREPITANT DIMEGLUMINE
     Indication: PROPHYLAXIS OF NAUSEA AND VOMITING
     Dosage: 150 MG, ONCE
     Route: 042
     Dates: start: 20160912, end: 20160912
  13. ALOXI [Concomitant]
     Active Substance: PALONOSETRON HYDROCHLORIDE
     Indication: PROPHYLAXIS OF NAUSEA AND VOMITING
     Dosage: 0.25 MG, ONCE
     Route: 042
     Dates: start: 20160912, end: 20160912
  14. ALOXI [Concomitant]
     Active Substance: PALONOSETRON HYDROCHLORIDE
     Dosage: 0.25 MG, ONCE
     Route: 042
     Dates: start: 20161107, end: 20161107
  15. ELOXATIN [Concomitant]
     Active Substance: OXALIPLATIN
     Dosage: 160 MG, ONCE, CYCLE 8 (STRENGTH: 100MG/20ML)
     Route: 042
     Dates: start: 20161004, end: 20161004
  16. DEXAMETHASONE SODIUM PHOSPHATE. [Concomitant]
     Active Substance: DEXAMETHASONE SODIUM PHOSPHATE
     Dosage: 12 MG, ONCE
     Route: 042
     Dates: start: 20161004, end: 20161004
  17. DEXAMETHASONE SODIUM PHOSPHATE. [Concomitant]
     Active Substance: DEXAMETHASONE SODIUM PHOSPHATE
     Dosage: 8 MG, ONCE
     Route: 042
     Dates: start: 20161005, end: 20161005
  18. DEXAMETHASONE SODIUM PHOSPHATE. [Concomitant]
     Active Substance: DEXAMETHASONE SODIUM PHOSPHATE
     Dosage: 8 MG, QD
     Route: 042
     Dates: start: 20161108, end: 20161109
  19. XELODA [Concomitant]
     Active Substance: CAPECITABINE
     Dosage: 500 MG, 2 TABLETS, BID, CYCLE 9
     Route: 048
     Dates: start: 20161107, end: 20161120
  20. DEXAMETHASONE SODIUM PHOSPHATE. [Concomitant]
     Active Substance: DEXAMETHASONE SODIUM PHOSPHATE
     Dosage: 12 MG, ONCE
     Route: 042
     Dates: start: 20161107, end: 20161107

REACTIONS (3)
  - Pyrexia [Recovered/Resolved]
  - Melaena [Recovered/Resolved]
  - Paraesthesia [Not Recovered/Not Resolved]

NARRATIVE: CASE EVENT DATE: 20161021
